FAERS Safety Report 6189285-1 (Version None)
Quarter: 2009Q2

REPORT INFORMATION
  Report Type: 
  Country: None (occurrence: None)
  Receive Date: 20090513
  Receipt Date: 20090504
  Transmission Date: 20091009
  Serious: Yes (Death)
  Sender: FDA-Public Use
  Company Number: US-AMGEN-US345733

PATIENT
  Sex: Male

DRUGS (3)
  1. NPLATE [Suspect]
     Indication: IDIOPATHIC THROMBOCYTOPENIC PURPURA
     Dates: start: 20090312, end: 20090409
  2. RITUXIMAB [Concomitant]
  3. CORTICOSTEROIDS [Concomitant]
     Dates: start: 20090215, end: 20090324

REACTIONS (1)
  - PNEUMONIA [None]
